FAERS Safety Report 24190274 (Version 2)
Quarter: 2024Q3

REPORT INFORMATION
  Report Type: Spontaneous
  Country: US (occurrence: US)
  Receive Date: 20240808
  Receipt Date: 20240813
  Transmission Date: 20241017
  Serious: No
  Sender: Haleon PLC
  Company Number: US-HALEON-2191001

PATIENT

DRUGS (3)
  1. ABREVA [Suspect]
     Active Substance: DOCOSANOL
     Indication: Arthropod bite
  2. ABREVA [Suspect]
     Active Substance: DOCOSANOL
     Indication: Oral herpes
  3. ABREVA [Suspect]
     Active Substance: DOCOSANOL
     Indication: Pruritus

REACTIONS (2)
  - Product use in unapproved indication [Unknown]
  - Drug effective for unapproved indication [Unknown]
